FAERS Safety Report 8861313 (Version 1)
Quarter: 2012Q4

REPORT INFORMATION
  Report Type: 
  Country: US (occurrence: US)
  Receive Date: 20121026
  Receipt Date: 20121026
  Transmission Date: 20130627
  Serious: No
  Sender: FDA-Public Use
  Company Number: US-PFIZER INC-2012267499

PATIENT
  Sex: Female

DRUGS (1)
  1. LYRICA [Suspect]
     Dosage: UNK, 2x/day
     Dates: start: 201210

REACTIONS (3)
  - Gait disturbance [Unknown]
  - Oedema peripheral [Unknown]
  - Pain in extremity [Unknown]
